FAERS Safety Report 10900406 (Version 1)
Quarter: 2015Q1

REPORT INFORMATION
  Report Type: Spontaneous
  Country: US (occurrence: None)
  Receive Date: 20150303
  Receipt Date: 20150303
  Transmission Date: 20150721
  Serious: Yes (Death, Hospitalization)
  Sender: FDA-Public Use
  Company Number: None

PATIENT
  Age: 96 Year
  Sex: Female
  Weight: 73 kg

DRUGS (16)
  1. SERTRALINE (ZOLOFT) [Concomitant]
  2. MAGNESIUM [Concomitant]
     Active Substance: MAGNESIUM
  3. WARFARIN 3 MG TABLETS [Suspect]
     Active Substance: WARFARIN
     Indication: ATRIAL FIBRILLATION
     Dosage: 0.5 TABLET QD ORAL
     Route: 048
  4. FAMOTIDINE (PEPCID) [Concomitant]
  5. ATENOLOL (TENORMIN) [Concomitant]
  6. CEPHALEXIN (KEFLEX) [Concomitant]
  7. LEVOTHYROXINE (SYNTHROID, LEVOTHROID) [Concomitant]
  8. MEMANTINE (NAMENDA) [Concomitant]
  9. LEVOTHYROXINE (LEVOTHROID) [Concomitant]
  10. FUROSEMIDE (LASIX) [Concomitant]
  11. SIMVASTATIN. [Concomitant]
     Active Substance: SIMVASTATIN
  12. ACETAMINOPHEN. [Concomitant]
     Active Substance: ACETAMINOPHEN
  13. NYSTATIN (MYCOSTATIN) [Concomitant]
  14. LOPERAMIDE (IMODIUM) [Concomitant]
  15. ASPIRIN. [Concomitant]
     Active Substance: ASPIRIN
  16. CHOLECALCIFEROL (VITAMIN D3) [Concomitant]

REACTIONS (1)
  - Subdural haematoma [None]

NARRATIVE: CASE EVENT DATE: 20140105
